FAERS Safety Report 7715774-1 (Version None)
Quarter: 2011Q3

REPORT INFORMATION
  Report Type: 
  Country: None (occurrence: None)
  Receive Date: 20110829
  Receipt Date: 20110817
  Transmission Date: 20111222
  Serious: Yes (Other)
  Sender: FDA-Public Use
  Company Number: CA-SANOFI-AVENTIS-2011SA052556

PATIENT
  Age: 70 Year
  Sex: Male

DRUGS (5)
  1. ETHAMBUTOL HYDROCHLORIDE [Concomitant]
     Dates: start: 20090801
  2. CLARITHROMYCIN [Concomitant]
     Dates: start: 20090801
  3. RIFAMPICIN [Suspect]
     Route: 065
     Dates: start: 20090801
  4. WARFARIN SODIUM [Interacting]
     Indication: ATRIAL FIBRILLATION
     Route: 065
  5. WARFARIN SODIUM [Interacting]
     Dosage: DOSE INCREASED BY 260 %
     Route: 065

REACTIONS (2)
  - DRUG INTERACTION [None]
  - INTERNATIONAL NORMALISED RATIO INCREASED [None]
